FAERS Safety Report 22274756 (Version 1)
Quarter: 2023Q2

REPORT INFORMATION
  Report Type: Spontaneous
  Country: US (occurrence: US)
  Receive Date: 20230502
  Receipt Date: 20230502
  Transmission Date: 20230721
  Serious: No
  Sender: FDA-Public Use
  Company Number: US-PFIZER INC-PV202300076891

PATIENT
  Age: 66 Year
  Sex: Female

DRUGS (3)
  1. XELJANZ [Interacting]
     Active Substance: TOFACITINIB CITRATE
     Dosage: 5 MG
  2. FLUTICASONE [Interacting]
     Active Substance: FLUTICASONE
     Dosage: UNK
  3. AZELASTINE [Interacting]
     Active Substance: AZELASTINE
     Dosage: UNK

REACTIONS (1)
  - Drug interaction [Unknown]
